FAERS Safety Report 8504149 (Version 2)
Quarter: 2013Q1

REPORT INFORMATION
  Report Type: Spontaneous
  Country: US (occurrence: US)
  Receive Date: 20120411
  Receipt Date: 20130319
  Transmission Date: 20140127
  Serious: No
  Sender: FDA-Public Use
  Company Number: US-PFIZER INC-2012087477

PATIENT
  Age: 61 Year
  Sex: 0

DRUGS (7)
  1. LYRICA [Suspect]
     Dosage: UNK
  2. KLONOPIN [Suspect]
     Dosage: UNK
  3. KEFLEX [Suspect]
     Dosage: UNK
  4. ULTRAM [Suspect]
     Dosage: UNK
  5. CELEXA [Suspect]
     Dosage: UNK
  6. SINGULAIR [Suspect]
     Dosage: UNK
  7. AMITRIPTYLINE [Suspect]
     Dosage: UNK

REACTIONS (5)
  - Myoclonus [Unknown]
  - Dyskinesia [Unknown]
  - Local swelling [Unknown]
  - Drug hypersensitivity [Unknown]
  - Abdominal pain [Unknown]
